FAERS Safety Report 17834445 (Version 1)
Quarter: 2020Q2

REPORT INFORMATION
  Report Type: Report from Study
  Country: None (occurrence: CA)
  Receive Date: 20200528
  Receipt Date: 20200528
  Transmission Date: 20200714
  Serious: Yes (Other)
  Sender: FDA-Public Use
  Company Number: CA-HLS-202000114

PATIENT
  Sex: Female

DRUGS (1)
  1. CLOZARIL [Suspect]
     Active Substance: CLOZAPINE
     Route: 048
     Dates: start: 20061009, end: 20200226

REACTIONS (6)
  - Psychotic disorder [Unknown]
  - Treatment noncompliance [Unknown]
  - Sedation complication [Unknown]
  - Somnolence [Unknown]
  - Ankle fracture [Unknown]
  - Myocardial infarction [Unknown]
